FAERS Safety Report 7388898-9 (Version None)
Quarter: 2011Q2

REPORT INFORMATION
  Report Type: 
  Country: None (occurrence: None)
  Receive Date: 20110401
  Receipt Date: 20091122
  Transmission Date: 20111010
  Serious: Yes (Death, Other)
  Sender: FDA-Public Use
  Company Number: US-BAYER-200940596NA

PATIENT
  Sex: Female
  Weight: 82 kg

DRUGS (12)
  1. FUROSEMIDE [Concomitant]
     Dosage: 40 MG, QD
     Route: 048
     Dates: start: 20000817
  2. OXYCODONE [Concomitant]
     Dosage: 5MG/325 TABLETS AS NEEDED
     Route: 048
     Dates: start: 20000824
  3. HEPARIN SODIUM [Concomitant]
     Dosage: 20000 UNITS/500CC 5% DEXTROSE IN WATER
     Route: 042
     Dates: start: 20000822
  4. AMPICILLIN [Concomitant]
     Dosage: 2 GM IN 100CC NORMAL SALINE
     Route: 042
     Dates: start: 20000816
  5. DIGOXIN [Concomitant]
     Dosage: 0.25 MG, QD
     Route: 048
     Dates: start: 20000824
  6. TRASYLOL [Suspect]
     Indication: HEART VALVE REPLACEMENT
     Dosage: UNK
     Route: 042
     Dates: start: 20001213
  7. LANSOPRAZOLE [Concomitant]
     Dosage: 30 MG, QD
     Route: 048
     Dates: start: 20000817
  8. GENTAMICIN [Concomitant]
     Dosage: 110MG IN 100CC NORMAL SALINE
     Route: 042
     Dates: start: 20000816, end: 20000816
  9. CEPHALEXIN [Concomitant]
     Dosage: 500 MG, UNK
     Route: 048
     Dates: start: 20000829
  10. AMPICILLIN [Concomitant]
     Dosage: 1 GM IN 50CC NORMAL SALINE
     Route: 042
     Dates: start: 20000816, end: 20000816
  11. COUMADIN [Concomitant]
     Dosage: 7.5 MG, QD
     Route: 048
     Dates: start: 20000824
  12. SERTRALINE HYDROCHLORIDE [Concomitant]
     Dosage: 100MG 1/2 TAB DAILY
     Route: 048
     Dates: start: 20000821

REACTIONS (13)
  - RENAL INJURY [None]
  - RENAL FAILURE [None]
  - STRESS [None]
  - ANXIETY [None]
  - PAIN [None]
  - ANHEDONIA [None]
  - MULTI-ORGAN FAILURE [None]
  - DEATH [None]
  - FEAR [None]
  - EMOTIONAL DISTRESS [None]
  - UNEVALUABLE EVENT [None]
  - RENAL IMPAIRMENT [None]
  - INJURY [None]
